FAERS Safety Report 7320964-6 (Version None)
Quarter: 2011Q1

REPORT INFORMATION
  Report Type: 
  Country: None (occurrence: None)
  Receive Date: 20110228
  Receipt Date: 20110219
  Transmission Date: 20110831
  Serious: No
  Sender: FDA-Public Use
  Company Number: US-ROCHE-761376

PATIENT
  Sex: Male

DRUGS (1)
  1. TAMIFLU [Suspect]
     Dosage: STRENGTH: 12MG/ML (OVERDOSE)
     Route: 065

REACTIONS (3)
  - LETHARGY [None]
  - OVERDOSE [None]
  - DIARRHOEA [None]
